FAERS Safety Report 23910750 (Version 1)
Quarter: 2024Q2

REPORT INFORMATION
  Report Type: Spontaneous
  Country: US (occurrence: US)
  Receive Date: 20240528
  Receipt Date: 20240528
  Transmission Date: 20240716
  Serious: No
  Sender: FDA-Public Use
  Company Number: US-AVADEL CNS PHARMACEUTICALS, LLC-2024AVA00336

PATIENT
  Age: 21 Year
  Sex: Female
  Weight: 80.726 kg

DRUGS (4)
  1. LUMRYZ [Suspect]
     Active Substance: SODIUM OXYBATE
     Indication: Narcolepsy
     Dosage: 9 G, ONCE NIGHTLY
     Route: 048
     Dates: start: 202312
  2. DULOXETINE [Concomitant]
     Active Substance: DULOXETINE
     Dosage: 30 MG, ONCE DAILY
  3. WAKIX [Concomitant]
     Active Substance: PITOLISANT HYDROCHLORIDE
     Dosage: 17.8 MG, ONCE DAILY
  4. VITAMINS NOS [Concomitant]
     Active Substance: VITAMINS
     Dosage: UNK

REACTIONS (5)
  - Middle insomnia [Unknown]
  - Insomnia [Unknown]
  - Stress [Unknown]
  - Nocturia [Unknown]
  - Nausea [Unknown]

NARRATIVE: CASE EVENT DATE: 20231201
